FAERS Safety Report 7469385-6 (Version None)
Quarter: 2011Q2

REPORT INFORMATION
  Report Type: 
  Country: None (occurrence: None)
  Receive Date: 20110429
  Receipt Date: 20110418
  Transmission Date: 20111010
  Serious: Yes (Hospitalization, Other)
  Sender: FDA-Public Use
  Company Number: FK201100793

PATIENT
  Age: 90 Year
  Sex: Male

DRUGS (6)
  1. VINBLASTINE SULFATE [Suspect]
     Indication: HODGKIN'S DISEASE
  2. ADRIAMYCIN PFS [Suspect]
     Indication: HODGKIN'S DISEASE
  3. PROCARBAZINE HYDROCHLORIDE [Suspect]
     Indication: HODGKIN'S DISEASE
  4. CYCLOPHOSPHAMIDE [Suspect]
     Indication: HODGKIN'S DISEASE
  5. PREDNISOLONE [Suspect]
     Indication: HODGKIN'S DISEASE
  6. DACARBAZINE [Suspect]
     Indication: HODGKIN'S DISEASE

REACTIONS (5)
  - MUSCULAR WEAKNESS [None]
  - BLOOD MAGNESIUM DECREASED [None]
  - HYPOCALCAEMIA [None]
  - LYMPHOMA [None]
  - DISEASE PROGRESSION [None]
